FAERS Safety Report 4612143-8 (Version None)
Quarter: 2005Q2

REPORT INFORMATION
  Report Type: 
  Country: None (occurrence: None)
  Receive Date: 20050308
  Receipt Date: 20041124
  Transmission Date: 20051028
  Serious: Yes (Other)
  Sender: FDA-Public Use
  Company Number: 2004UW24308

PATIENT
  Age: 54 Year
  Sex: Female
  Weight: 81.646 kg

DRUGS (10)
  1. CRESTOR [Suspect]
     Dosage: 10 MG PO
     Route: 048
  2. LOPID [Concomitant]
  3. LIPITOR [Concomitant]
  4. RESTORIL [Concomitant]
  5. NEXIUM [Concomitant]
  6. VICODIN [Concomitant]
  7. FISH OIL [Concomitant]
  8. ASPIRIN [Concomitant]
  9. CENTRUM [Concomitant]
  10. PROVIGIL [Concomitant]

REACTIONS (6)
  - ABDOMINAL DISTENSION [None]
  - ABDOMINAL PAIN UPPER [None]
  - CONSTIPATION [None]
  - FEELING ABNORMAL [None]
  - FIBROMYALGIA [None]
  - NAUSEA [None]
